FAERS Safety Report 9770597 (Version 1)
Quarter: 2013Q4

REPORT INFORMATION
  Report Type: Spontaneous
  Country: ES (occurrence: ES)
  Receive Date: 20131218
  Receipt Date: 20131218
  Transmission Date: 20140711
  Serious: Yes (Hospitalization)
  Sender: FDA-Public Use
  Company Number: ES-ASTRAZENECA-2013SE90883

PATIENT
  Age: 56 Year
  Sex: Male

DRUGS (5)
  1. MERONEM [Suspect]
     Indication: RESPIRATORY TRACT INFECTION
     Route: 042
     Dates: start: 20130228, end: 20130311
  2. LINEZOLID [Suspect]
     Indication: RESPIRATORY TRACT INFECTION
     Route: 042
     Dates: start: 20130228, end: 20130311
  3. PANTOPRAZOLE [Concomitant]
     Indication: PROPHYLAXIS AGAINST GASTROINTESTINAL ULCER
     Route: 042
     Dates: start: 20130221
  4. COLISTIMETHATE SODIUM [Concomitant]
     Indication: RESPIRATORY TRACT INFECTION
     Dosage: FREQUENCY: DAYS
     Route: 042
     Dates: start: 20130307
  5. CLEXAN [Concomitant]
     Indication: THROMBOSIS PROPHYLAXIS
     Route: 058
     Dates: start: 20130221

REACTIONS (1)
  - Hepatitis [Recovered/Resolved]
